FAERS Safety Report 19386794 (Version 3)
Quarter: 2021Q4

REPORT INFORMATION
  Report Type: Spontaneous
  Country: US (occurrence: US)
  Receive Date: 20210607
  Receipt Date: 20211014
  Transmission Date: 20220303
  Serious: Yes (Hospitalization, Other)
  Sender: FDA-Public Use
  Company Number: US-PFIZER INC-2021605405

PATIENT
  Age: 59 Year
  Sex: Female

DRUGS (3)
  1. IBRANCE [Suspect]
     Active Substance: PALBOCICLIB
     Indication: Breast cancer female
     Dosage: 125 MG (FOR 21DAYS)
     Dates: start: 20210511
  2. ARIMIDEX [Concomitant]
     Active Substance: ANASTROZOLE
  3. XGEVA [Concomitant]
     Active Substance: DENOSUMAB

REACTIONS (10)
  - Nephrolithiasis [Unknown]
  - Gastric haemorrhage [Unknown]
  - Gastric antral vascular ectasia [Unknown]
  - Alopecia [Unknown]
  - Vitamin D deficiency [Unknown]
  - Coccydynia [Unknown]
  - Back pain [Unknown]
  - Tooth injury [Unknown]
  - Hot flush [Unknown]
  - Weight increased [Unknown]
